FAERS Safety Report 10372089 (Version 1)
Quarter: 2014Q3

REPORT INFORMATION
  Report Type: Spontaneous
  Country: US (occurrence: US)
  Receive Date: 20140808
  Receipt Date: 20140808
  Transmission Date: 20150326
  Serious: Yes (Other)
  Sender: FDA-Public Use
  Company Number: US-BRISTOL-MYERS SQUIBB COMPANY-21241864

PATIENT
  Age: 54 Year
  Sex: Male

DRUGS (7)
  1. OMEPRAZOLE. [Concomitant]
     Active Substance: OMEPRAZOLE
  2. COLCRYS [Concomitant]
     Active Substance: COLCHICINE
  3. ALLOPURINOL. [Concomitant]
     Active Substance: ALLOPURINOL
  4. COUMADIN [Suspect]
     Active Substance: WARFARIN SODIUM
     Indication: THROMBOSIS
     Dosage: 1 DF: 5 MG DAILY AND 7.5 MG EVERY OTHER DAY.
     Dates: start: 201203, end: 201311
  5. PROBENECID. [Concomitant]
     Active Substance: PROBENECID
  6. LABETALOL [Concomitant]
     Active Substance: LABETALOL\LABETALOL HYDROCHLORIDE
  7. BUDESONIDE. [Concomitant]
     Active Substance: BUDESONIDE

REACTIONS (1)
  - Vein collapse [Unknown]
